FAERS Safety Report 8052393-4 (Version None)
Quarter: 2011Q4

REPORT INFORMATION
  Report Type: 
  Country: None (occurrence: None)
  Receive Date: 20111228
  Receipt Date: 20111215
  Transmission Date: 20120403
  Serious: Yes (Hospitalization)
  Sender: FDA-Public Use
  Company Number: 2011030601

PATIENT
  Sex: Female
  Weight: 101.9 kg

DRUGS (17)
  1. BERINERT [Suspect]
     Indication: PROPHYLAXIS AGAINST TRANSPLANT REJECTION
     Dosage: SEE IMAGE
     Route: 042
     Dates: start: 20111206
  2. BERINERT [Suspect]
     Indication: PROPHYLAXIS AGAINST TRANSPLANT REJECTION
     Dosage: SEE IMAGE
     Route: 042
     Dates: start: 20111202
  3. BERINERT [Suspect]
     Indication: PROPHYLAXIS AGAINST TRANSPLANT REJECTION
     Dosage: SEE IMAGE
     Route: 042
     Dates: start: 20111204
  4. LABETALOL HCL [Concomitant]
  5. CIPROFLOXACIN [Concomitant]
  6. BACTRIM [Concomitant]
  7. NORCO [Concomitant]
  8. PROGRAF (TARCROLIMUS) [Concomitant]
  9. CELLCEPT [Suspect]
     Indication: PROPHYLAXIS AGAINST TRANSPLANT REJECTION
     Dosage: 1000 MG BID ORAL
     Route: 048
     Dates: start: 20111202
  10. FLUCONAZOLE [Concomitant]
  11. PREDNISONE TAB [Concomitant]
  12. COLACE (DOCUSATE SODIUM) [Concomitant]
  13. NIFEDIPINE [Concomitant]
  14. PRILOSEC [Concomitant]
  15. PHOS-NAK (PHOS-NAK) [Concomitant]
  16. CLONIDINE [Concomitant]
  17. VALCTE (VALGANCICLOVIR HYDROCHLORIDE) [Concomitant]

REACTIONS (7)
  - ASTHENIA [None]
  - NAUSEA [None]
  - HYPERKALAEMIA [None]
  - VOMITING [None]
  - GASTRITIS [None]
  - DYSPNOEA [None]
  - HYPOTENSION [None]
